FAERS Safety Report 19126076 (Version 2)
Quarter: 2022Q1

REPORT INFORMATION
  Report Type: Report from Study
  Country: CA (occurrence: CA)
  Receive Date: 20210412
  Receipt Date: 20220318
  Transmission Date: 20220423
  Serious: Yes (Hospitalization, Other)
  Sender: FDA-Public Use
  Company Number: CA-BAUSCH-BL-2021-011729

PATIENT
  Age: 51 Year
  Sex: Female

DRUGS (4)
  1. ALBUTEROL SULFATE [Suspect]
     Active Substance: ALBUTEROL SULFATE
     Indication: Product used for unknown indication
     Route: 065
  2. BUDESONIDE\FORMOTEROL FUMARATE [Suspect]
     Active Substance: BUDESONIDE\FORMOTEROL FUMARATE
     Indication: Product used for unknown indication
  3. TERBUTALINE SULFATE [Suspect]
     Active Substance: TERBUTALINE SULFATE
     Indication: Product used for unknown indication
     Route: 065
  4. SYMBICORT [Suspect]
     Active Substance: BUDESONIDE\FORMOTEROL FUMARATE DIHYDRATE
     Indication: Product used for unknown indication
     Route: 055

REACTIONS (17)
  - Allergy to plants [Unknown]
  - Asthma [Unknown]
  - Full blood count abnormal [Unknown]
  - Condition aggravated [Unknown]
  - Drug intolerance [Unknown]
  - Dust allergy [Unknown]
  - Dyspnoea [Unknown]
  - Hyposmia [Unknown]
  - Loss of personal independence in daily activities [Unknown]
  - Nasal polyps [Unknown]
  - Pneumothorax [Unknown]
  - Polyp [Unknown]
  - Reversible airways obstruction [Unknown]
  - Sleep disorder due to a general medical condition [Unknown]
  - Cough [Unknown]
  - Wheezing [Unknown]
  - Therapeutic product effect incomplete [Unknown]
